FAERS Safety Report 17217136 (Version 1)
Quarter: 2019Q4

REPORT INFORMATION
  Report Type: Spontaneous
  Country: CA (occurrence: CA)
  Receive Date: 20191231
  Receipt Date: 20191231
  Transmission Date: 20200122
  Serious: Yes (Death)
  Sender: FDA-Public Use
  Company Number: CA-ROCHE-2506039

PATIENT
  Age: 74 Year
  Sex: Male

DRUGS (4)
  1. XOLAIR [Suspect]
     Active Substance: OMALIZUMAB
     Dosage: 150 MG
     Route: 058
  2. XOLAIR [Suspect]
     Active Substance: OMALIZUMAB
     Dosage: 150 MG
     Route: 058
  3. XOLAIR [Suspect]
     Active Substance: OMALIZUMAB
     Indication: ASTHMA
     Dosage: UNK
     Route: 058
  4. AZITHROMYCIN ANHYDROUS. [Suspect]
     Active Substance: AZITHROMYCIN ANHYDROUS
     Indication: LUNG NEOPLASM MALIGNANT
     Route: 048

REACTIONS (15)
  - Abdominal pain upper [Fatal]
  - Dyspnoea [Fatal]
  - Obstructive airways disorder [Fatal]
  - Influenza [Fatal]
  - Off label use [Fatal]
  - Oxygen saturation decreased [Fatal]
  - Blood pressure increased [Fatal]
  - Decreased appetite [Fatal]
  - Product use in unapproved indication [Fatal]
  - Forced expiratory volume decreased [Fatal]
  - Malaise [Fatal]
  - Forced vital capacity decreased [Fatal]
  - Inappropriate schedule of product administration [Fatal]
  - Asthma [Fatal]
  - Heart rate increased [Fatal]
